FAERS Safety Report 18276640 (Version 10)
Quarter: 2022Q1

REPORT INFORMATION
  Report Type: Spontaneous
  Country: US (occurrence: None)
  Receive Date: 20200917
  Receipt Date: 20220302
  Transmission Date: 20220424
  Serious: Yes (Hospitalization, Other)
  Sender: FDA-Public Use
  Company Number: US-ROCHE-2677811

PATIENT
  Sex: Female

DRUGS (4)
  1. XELODA [Suspect]
     Active Substance: CAPECITABINE
     Indication: Breast cancer female
     Route: 048
  2. TUKYSA [Suspect]
     Active Substance: TUCATINIB
     Indication: Breast cancer female
     Route: 048
     Dates: start: 20200708
  3. TUKYSA [Suspect]
     Active Substance: TUCATINIB
     Route: 048
     Dates: start: 20220216
  4. HERCEPTIN [Suspect]
     Active Substance: TRASTUZUMAB
     Indication: Product used for unknown indication
     Route: 041

REACTIONS (15)
  - Neoplasm progression [Unknown]
  - Pneumonia [Unknown]
  - Tooth disorder [Unknown]
  - Emotional distress [Unknown]
  - Memory impairment [Unknown]
  - Hyperaesthesia [Recovered/Resolved]
  - Hepatic enzyme increased [Recovered/Resolved]
  - Diarrhoea [Recovered/Resolved]
  - Illness [Unknown]
  - Lung disorder [Unknown]
  - Nausea [Unknown]
  - Rash [Unknown]
  - Fall [Unknown]
  - Dehydration [Unknown]
  - Urinary tract infection [Unknown]
